FAERS Safety Report 6408503-5 (Version None)
Quarter: 2009Q4

REPORT INFORMATION
  Report Type: 
  Country: None (occurrence: None)
  Receive Date: 20091021
  Receipt Date: 20091012
  Transmission Date: 20100525
  Serious: Yes (Death, Hospitalization)
  Sender: FDA-Public Use
  Company Number: PT-BAYER-200931568GPV

PATIENT
  Age: 66 Year
  Sex: Female
  Weight: 62 kg

DRUGS (2)
  1. FLUDARABINE [Suspect]
     Indication: CHRONIC LYMPHOCYTIC LEUKAEMIA
     Dosage: AS USED: 40 MG
     Route: 042
     Dates: start: 20090526, end: 20090624
  2. CYCLOPHOSPHAMIDE [Concomitant]
     Indication: CHRONIC LYMPHOCYTIC LEUKAEMIA
     Dosage: AS USED: 300 MG
     Route: 042
     Dates: start: 20090524, end: 20090624

REACTIONS (5)
  - ANAEMIA HAEMOLYTIC AUTOIMMUNE [None]
  - BONE MARROW FAILURE [None]
  - PERITONEAL HAEMORRHAGE [None]
  - PNEUMONIA [None]
  - PYREXIA [None]
